FAERS Safety Report 24444316 (Version 2)
Quarter: 2024Q4

REPORT INFORMATION
  Report Type: Report from Study
  Country: US (occurrence: US)
  Receive Date: 20241016
  Receipt Date: 20241017
  Transmission Date: 20250115
  Serious: No
  Sender: ROCHE
  Company Number: US-ROCHE-2840000

PATIENT
  Age: 41 Year
  Sex: Female
  Weight: 77.11 kg

DRUGS (5)
  1. RITUXAN [Suspect]
     Active Substance: RITUXIMAB
     Indication: Multiple sclerosis
     Dosage: 2 HALF DOSES
     Route: 042
     Dates: start: 202008, end: 2020
  2. RITUXAN [Suspect]
     Active Substance: RITUXIMAB
     Indication: Unevaluable event
     Route: 042
     Dates: start: 202009, end: 2020
  3. PROVIGIL [Concomitant]
     Active Substance: MODAFINIL
  4. FLOMAX [Concomitant]
     Active Substance: TAMSULOSIN HYDROCHLORIDE
  5. PAROXETINE [Concomitant]
     Active Substance: PAROXETINE

REACTIONS (2)
  - Fatigue [Unknown]
  - Off label use [Unknown]

NARRATIVE: CASE EVENT DATE: 20200801
